FAERS Safety Report 4945181-6 (Version None)
Quarter: 2006Q1

REPORT INFORMATION
  Report Type: 
  Country: None (occurrence: None)
  Receive Date: 20060316
  Receipt Date: 20060301
  Transmission Date: 20060701
  Serious: Yes (Hospitalization)
  Sender: FDA-Public Use
  Company Number: US-JNJFOC-20060203489

PATIENT
  Sex: Female
  Weight: 53.07 kg

DRUGS (3)
  1. ORTHO EVRA [Suspect]
     Route: 062
     Dates: start: 20050215, end: 20050509
  2. ORTHO EVRA [Suspect]
     Indication: CONTRACEPTION
     Route: 062
     Dates: start: 20050215, end: 20050509
  3. COUMADIN [Suspect]
     Indication: ANTICOAGULANT THERAPY

REACTIONS (5)
  - DEEP VEIN THROMBOSIS [None]
  - PERITONSILLAR ABSCESS [None]
  - PULMONARY EMBOLISM [None]
  - PYREXIA [None]
  - TONSILLAR HAEMORRHAGE [None]
